FAERS Safety Report 10045449 (Version 1)
Quarter: 2014Q1

REPORT INFORMATION
  Report Type: Spontaneous
  Country: US (occurrence: None)
  Receive Date: 20140306
  Receipt Date: 20140306
  Transmission Date: 20141002
  Serious: Yes (Other)
  Sender: FDA-Public Use
  Company Number: 163-21880-13061039

PATIENT
  Age: 52 Year
  Sex: Male

DRUGS (1)
  1. REVLIMID (LENALIDOMIDE) (CAPSULES) [Suspect]
     Indication: LYMPHOMA
     Route: 048
     Dates: start: 201207

REACTIONS (1)
  - Transient ischaemic attack [None]
